FAERS Safety Report 5312000-8 (Version None)
Quarter: 2007Q2

REPORT INFORMATION
  Report Type: 
  Country: None (occurrence: None)
  Receive Date: 20070430
  Receipt Date: 20060512
  Transmission Date: 20071010
  Serious: No
  Sender: FDA-Public Use
  Company Number: 2006UW09367

PATIENT
  Age: 47 Year
  Sex: Male
  Weight: 85.5 kg

DRUGS (10)
  1. NEXIUM [Suspect]
     Indication: VOMITING
     Route: 048
     Dates: start: 20060401
  2. NEXIUM [Suspect]
     Indication: ANOREXIA
     Route: 048
     Dates: start: 20060401
  3. PEG-INTRON [Suspect]
     Indication: HEPATITIS C
     Route: 058
     Dates: start: 20060329
  4. REBETOL [Suspect]
     Indication: HEPATITIS C
     Route: 048
     Dates: start: 20060329
  5. PROMETHAZINE [Suspect]
     Indication: VOMITING
  6. DILAUDID [Concomitant]
     Route: 048
  7. DURAGESIC-100 [Concomitant]
     Route: 062
  8. UNIRETIC [Concomitant]
     Dosage: 15-25 MG
     Route: 048
  9. VALIUM [Concomitant]
     Route: 048
  10. WELLBUTRIN XL [Concomitant]
     Route: 048

REACTIONS (2)
  - DIPLOPIA [None]
  - FALL [None]
